FAERS Safety Report 11214758 (Version 1)
Quarter: 2015Q2

REPORT INFORMATION
  Report Type: Spontaneous
  Country: JP (occurrence: JP)
  Receive Date: 20150624
  Receipt Date: 20150624
  Transmission Date: 20150821
  Serious: Yes (Hospitalization)
  Sender: FDA-Public Use
  Company Number: JP-AMGEN-JPNSP2015061563

PATIENT
  Sex: Male

DRUGS (3)
  1. ENBREL [Suspect]
     Active Substance: ETANERCEPT
     Indication: PRODUCT USED FOR UNKNOWN INDICATION
     Dosage: 50 MG, UNK
     Route: 058
     Dates: end: 2014
  2. ENBREL [Suspect]
     Active Substance: ETANERCEPT
     Dosage: 50 UNK, UNK
     Route: 058
     Dates: start: 201506
  3. PREDONINE [Suspect]
     Active Substance: PREDNISOLONE\PREDNISOLONE ACETATE\PREDNISOLONE SODIUM SUCCINATE
     Indication: PRODUCT USED FOR UNKNOWN INDICATION
     Dosage: UNK
     Route: 065

REACTIONS (5)
  - Drug ineffective [Unknown]
  - Pneumonia [Unknown]
  - Arthralgia [Unknown]
  - Body temperature increased [Unknown]
  - Malaise [Unknown]

NARRATIVE: CASE EVENT DATE: 201310
